FAERS Safety Report 9458102 (Version 3)
Quarter: 2013Q3

REPORT INFORMATION
  Report Type: Report from Study
  Country: DE (occurrence: DE)
  Receive Date: 20130814
  Receipt Date: 20130918
  Transmission Date: 20140515
  Serious: Yes (Hospitalization)
  Sender: FDA-Public Use
  Company Number: PHHO2013DE010577

PATIENT
  Sex: 0

DRUGS (9)
  1. MYFORTIC [Suspect]
     Indication: RENAL TRANSPLANT
     Dosage: 720 MG, BID
     Route: 048
     Dates: start: 20120318, end: 20121203
  2. MYFORTIC [Suspect]
     Dosage: 360 MG, BID
     Route: 048
     Dates: start: 20121204, end: 20130104
  3. MYFORTIC [Suspect]
     Dosage: 360 MG, BID
     Route: 048
     Dates: start: 20130118
  4. PROGRAF [Suspect]
     Indication: RENAL TRANSPLANT
     Dosage: 2 MG, BID
     Route: 048
     Dates: start: 20120318
  5. SIMULECT [Concomitant]
     Indication: RENAL TRANSPLANT
     Dosage: 20 MG, UNK
     Route: 042
     Dates: start: 20120318
  6. PREDNISON [Concomitant]
     Indication: RENAL TRANSPLANT
     Dosage: 5 MG, QD
     Route: 048
     Dates: start: 20120318, end: 20121203
  7. PREDNISON [Concomitant]
     Dosage: 10 MG, QD
     Route: 048
     Dates: start: 20121204, end: 20130104
  8. PREDNISON [Concomitant]
     Dosage: 30 MG, QD
     Route: 048
     Dates: start: 20130108
  9. PREDNISON [Concomitant]
     Dosage: 10 MG, QD
     Route: 048
     Dates: start: 20130119

REACTIONS (3)
  - Nephrogenic anaemia [Recovered/Resolved]
  - Diarrhoea [Recovered/Resolved]
  - Renal impairment [Recovered/Resolved]
